FAERS Safety Report 9176548 (Version 1)
Quarter: 2013Q1

REPORT INFORMATION
  Report Type: Spontaneous
  Country: US (occurrence: None)
  Receive Date: 20130320
  Receipt Date: 20130320
  Transmission Date: 20140127
  Serious: No
  Sender: FDA-Public Use
  Company Number: None

PATIENT
  Age: 71 Year
  Sex: Male
  Weight: 77.11 kg

DRUGS (1)
  1. LIALDA [Suspect]
     Dosage: 3 TABLETS PO
     Dates: start: 20120601, end: 20130311

REACTIONS (1)
  - Dyspnoea [None]
